FAERS Safety Report 11109285 (Version 1)
Quarter: 2015Q2

REPORT INFORMATION
  Report Type: Spontaneous
  Country: US (occurrence: None)
  Receive Date: 20150511
  Receipt Date: 20150511
  Transmission Date: 20150821
  Serious: Yes (Disabling)
  Sender: FDA-Public Use
  Company Number: None

PATIENT
  Age: 72 Year
  Sex: Male
  Weight: 90.72 kg

DRUGS (7)
  1. LOSARTAN [Concomitant]
     Active Substance: LOSARTAN
  2. ATORVASTATIN [Concomitant]
     Active Substance: ATORVASTATIN
  3. AVODART [Concomitant]
     Active Substance: DUTASTERIDE
  4. MYRBETRIQ [Suspect]
     Active Substance: MIRABEGRON
     Indication: MICTURITION URGENCY
     Route: 048
     Dates: start: 20150401, end: 20150505
  5. MYRBETRIQ [Suspect]
     Active Substance: MIRABEGRON
     Indication: POLLAKIURIA
     Route: 048
     Dates: start: 20150401, end: 20150505
  6. TOLTERODINE [Concomitant]
     Active Substance: TOLTERODINE
  7. METOPROLOL [Concomitant]
     Active Substance: METOPROLOL

REACTIONS (3)
  - Condition aggravated [None]
  - Drug interaction [None]
  - Atrial fibrillation [None]

NARRATIVE: CASE EVENT DATE: 20150401
